FAERS Safety Report 16155679 (Version 1)
Quarter: 2019Q2

REPORT INFORMATION
  Report Type: Spontaneous
  Country: NZ (occurrence: NZ)
  Receive Date: 20190404
  Receipt Date: 20190404
  Transmission Date: 20190711
  Serious: Yes (Other)
  Sender: FDA-Public Use
  Company Number: NZ-ABBVIE-19K-118-2726829-00

PATIENT
  Age: 42 Year
  Sex: Female

DRUGS (5)
  1. INFLIXIMAB [Suspect]
     Active Substance: INFLIXIMAB
     Indication: PRODUCT USED FOR UNKNOWN INDICATION
     Route: 065
  2. HUMIRA [Suspect]
     Active Substance: ADALIMUMAB
     Indication: RHEUMATOID ARTHRITIS
     Route: 058
  3. PREDNISONE. [Concomitant]
     Active Substance: PREDNISONE
     Indication: PRODUCT USED FOR UNKNOWN INDICATION
  4. NORTRIPTYLINE [Concomitant]
     Active Substance: NORTRIPTYLINE
     Indication: PRODUCT USED FOR UNKNOWN INDICATION
     Dosage: EVERY NIGHT
  5. ARCOXIA [Concomitant]
     Active Substance: ETORICOXIB
     Indication: PRODUCT USED FOR UNKNOWN INDICATION

REACTIONS (11)
  - Tenosynovitis [Unknown]
  - Uveitis [Unknown]
  - Eye haemorrhage [Unknown]
  - Spondylitis [Unknown]
  - Iritis [Recovered/Resolved]
  - Metatarsalgia [Unknown]
  - HLA-B*27 positive [Unknown]
  - Rectal haemorrhage [Unknown]
  - Palindromic rheumatism [Unknown]
  - Rheumatoid arthritis [Unknown]
  - Seizure [Unknown]

NARRATIVE: CASE EVENT DATE: 20160129
